FAERS Safety Report 13913346 (Version 1)
Quarter: 2017Q3

REPORT INFORMATION
  Report Type: Spontaneous
  Country: US (occurrence: US)
  Receive Date: 20170828
  Receipt Date: 20170828
  Transmission Date: 20171127
  Serious: No
  Sender: FDA-Public Use
  Company Number: US-ROCHE-1129077

PATIENT
  Sex: Male

DRUGS (5)
  1. NUTROPIN [Suspect]
     Active Substance: SOMATROPIN
     Indication: PUSTULAR PSORIASIS
  2. NUTROPIN [Suspect]
     Active Substance: SOMATROPIN
     Indication: PSORIASIS
     Route: 065
  3. NUTROPIN [Suspect]
     Active Substance: SOMATROPIN
     Indication: PUSTULAR PSORIASIS
  4. NUTROPIN [Suspect]
     Active Substance: SOMATROPIN
     Indication: OFF LABEL USE
  5. RAPTIVA [Suspect]
     Active Substance: EFALIZUMAB
     Indication: PRODUCT USED FOR UNKNOWN INDICATION
     Route: 065

REACTIONS (2)
  - Malaise [Unknown]
  - Influenza [Unknown]
